FAERS Safety Report 8049239-7 (Version None)
Quarter: 2012Q1

REPORT INFORMATION
  Report Type: 
  Country: None (occurrence: None)
  Receive Date: 20120117
  Receipt Date: 20120112
  Transmission Date: 20120608
  Serious: Yes (Other)
  Sender: FDA-Public Use
  Company Number: US-BAYER-200940508NA

PATIENT
  Age: 22 Year
  Sex: Male
  Weight: 77 kg

DRUGS (30)
  1. WARFARIN SODIUM [Concomitant]
     Dosage: 5MG
     Route: 048
  2. BUMEX [Concomitant]
     Dosage: 1MG
     Route: 048
  3. TRASYLOL [Suspect]
     Indication: VENTRICULAR ASSIST DEVICE INSERTION
     Dosage: UNK
     Route: 042
     Dates: start: 19991104, end: 19991104
  4. PLATELETS [Concomitant]
     Dosage: UNK
     Dates: start: 19991105
  5. AMIODARONE HCL [Concomitant]
     Dosage: 400MG
     Route: 048
  6. MANNITOL [Concomitant]
     Dosage: UNK
     Dates: start: 20001105
  7. MILRINONE [Concomitant]
     Dosage: TITRATED
     Route: 042
     Dates: start: 19991104
  8. COREG [Concomitant]
     Dosage: 25MG
     Route: 048
  9. VANCOMYCIN [Concomitant]
     Dosage: UNK
     Dates: start: 20001105
  10. FRESH FROZEN PLASMA [Concomitant]
     Dosage: UNK
     Dates: start: 19991104
  11. DIGOXIN [Concomitant]
     Dosage: 0.0625MG
     Route: 048
  12. FENTANYL [Concomitant]
     Dosage: 3MG
     Route: 042
     Dates: start: 19991104
  13. VANCOMYCIN [Concomitant]
     Dosage: UNK
     Dates: start: 20000728
  14. TRASYLOL [Suspect]
     Indication: RENAL TRANSPLANT
     Dosage: 50 ML, Q1HR
     Route: 042
     Dates: start: 20001104, end: 20001104
  15. TRASYLOL [Suspect]
     Indication: HEART TRANSPLANT
     Dosage: LOADING DOSE: AMICAR @ 20CC/HR STARTED AT 08:30
  16. PREVACID [Concomitant]
     Dosage: 30MG
     Route: 048
  17. LASIX [Concomitant]
     Dosage: 80MG
     Dates: start: 20001105
  18. EPINEPHRINE [Concomitant]
     Dosage: TITRATED
     Route: 042
     Dates: start: 19991104
  19. PRAVACHOL [Concomitant]
     Dosage: 40MG
     Route: 048
  20. ACETYLSALICYLIC ACID SRT [Concomitant]
     Dosage: 325 MG, QD
     Route: 048
  21. FENTANYL [Concomitant]
     Dosage: UNK
     Dates: start: 20001105
  22. HEPARIN [Concomitant]
     Dosage: 30,000 UNITS
     Route: 042
     Dates: start: 19991104
  23. LEVOFLOXACIN [Concomitant]
     Dosage: 150 MG, UNK
     Route: 048
  24. PROTAMINE SULFATE [Concomitant]
     Dosage: 400MG
     Route: 042
     Dates: start: 19991104
  25. RED BLOOD CELLS [Concomitant]
     Dosage: UNK
     Dates: start: 19991104
  26. ZESTRIL [Concomitant]
     Dosage: 10 MG, QD
     Route: 048
  27. LEVOFLOXACIN [Concomitant]
     Dosage: UNK
     Dates: start: 20000728
  28. AMICAR [Concomitant]
     Indication: VENTRICULAR ASSIST DEVICE INSERTION
     Dosage: 10GRAM
     Route: 042
     Dates: start: 19991104
  29. AMICAR [Concomitant]
     Dosage: AMICAR @ 20CC/HR STARTED AT 0830
     Dates: start: 19991104
  30. DOBUTAMINE HCL [Concomitant]
     Dosage: TITRATED
     Route: 042
     Dates: start: 19991104

REACTIONS (12)
  - RENAL FAILURE [None]
  - RENAL INJURY [None]
  - EMOTIONAL DISTRESS [None]
  - ANHEDONIA [None]
  - RENAL IMPAIRMENT [None]
  - PAIN [None]
  - STRESS [None]
  - ANXIETY [None]
  - UNEVALUABLE EVENT [None]
  - INJURY [None]
  - PSYCHOLOGICAL TRAUMA [None]
  - FEAR [None]
